FAERS Safety Report 21607813 (Version 1)
Quarter: 2022Q4

REPORT INFORMATION
  Report Type: Spontaneous
  Country: BG (occurrence: BG)
  Receive Date: 20221117
  Receipt Date: 20221117
  Transmission Date: 20230113
  Serious: Yes (Other)
  Sender: FDA-Public Use
  Company Number: BG-009507513-2211BGR003971

PATIENT
  Age: 68 Year
  Sex: Male

DRUGS (2)
  1. PEMBROLIZUMAB [Suspect]
     Active Substance: PEMBROLIZUMAB
     Dosage: UNK
     Dates: start: 2020, end: 202008
  2. PEMBROLIZUMAB [Suspect]
     Active Substance: PEMBROLIZUMAB
     Dosage: UNK
     Dates: start: 202009

REACTIONS (7)
  - Tumour pseudoprogression [Unknown]
  - Malignant neoplasm progression [Unknown]
  - Pneumonitis [Unknown]
  - Therapeutic response delayed [Unknown]
  - Blood lactate dehydrogenase abnormal [Unknown]
  - Pain [Unknown]
  - Vitiligo [Unknown]

NARRATIVE: CASE EVENT DATE: 20200801
